FAERS Safety Report 5145643-5 (Version None)
Quarter: 2006Q4

REPORT INFORMATION
  Report Type: 
  Country: None (occurrence: None)
  Receive Date: 20061102
  Receipt Date: 20061017
  Transmission Date: 20070319
  Serious: Yes (Hospitalization)
  Sender: FDA-Public Use
  Company Number: CIP06002481

PATIENT
  Age: 82 Year
  Sex: Male

DRUGS (4)
  1. FURADANTIN [Suspect]
     Indication: URINARY TRACT INFECTION
     Dosage: ORAL
     Route: 048
     Dates: start: 20060824, end: 20060902
  2. CORDARONE [Suspect]
     Indication: ARRHYTHMIA
     Dosage: 200 MG ONCE DAILY, ORAL
     Route: 048
     Dates: start: 20060719, end: 20060910
  3. PLAVIX [Suspect]
     Indication: ISCHAEMIC CARDIOMYOPATHY
     Dosage: ORAL
     Route: 048
     Dates: start: 20060719, end: 20060924
  4. FORLAX (MACROGOL) POWDER [Concomitant]

REACTIONS (7)
  - ANAEMIA [None]
  - CHOLANGITIS ACUTE [None]
  - ERYTHROSIS [None]
  - HEPATITIS CHOLESTATIC [None]
  - RENAL FAILURE [None]
  - URINARY RETENTION [None]
  - URINARY TRACT INFECTION [None]
